FAERS Safety Report 5483921-0 (Version None)
Quarter: 2007Q4

REPORT INFORMATION
  Report Type: 
  Country: None (occurrence: None)
  Receive Date: 20071009
  Receipt Date: 20071009
  Transmission Date: 20080405
  Serious: Yes (Other)
  Sender: FDA-Public Use
  Company Number: None

PATIENT
  Age: 51 Year
  Sex: Female

DRUGS (1)
  1. VICODIN ES [Suspect]
     Indication: TOOTH ABSCESS
     Dosage: 1 Q4-6H PRN
     Dates: start: 20070813, end: 20070814

REACTIONS (3)
  - DRUG INEFFECTIVE [None]
  - MALAISE [None]
  - VOMITING [None]
